FAERS Safety Report 5923381-6 (Version None)
Quarter: 2008Q4

REPORT INFORMATION
  Report Type: 
  Country: None (occurrence: None)
  Receive Date: 20081015
  Receipt Date: 20080930
  Transmission Date: 20090506
  Serious: Yes (Hospitalization)
  Sender: FDA-Public Use
  Company Number: WAES0808USA01423

PATIENT
  Age: 69 Year
  Sex: Male
  Weight: 73.9363 kg

DRUGS (27)
  1. CAP VORINOSTAT 400 MG [Suspect]
     Indication: ACUTE MYELOID LEUKAEMIA
     Dosage: 400 MG/DAILY/PO
     Route: 048
     Dates: start: 20080703, end: 20080716
  2. CAP VORINOSTAT 400 MG [Suspect]
     Indication: ACUTE MYELOID LEUKAEMIA
     Dosage: 400 MG/DAILY/PO
     Route: 048
     Dates: start: 20080804, end: 20080817
  3. DECITABINE 40 MG/M[2] [Suspect]
     Indication: ACUTE MYELOID LEUKAEMIA
     Dosage: 20 MG/M[2] /DAILY/IV
     Route: 042
     Dates: start: 20080703, end: 20080707
  4. DECITABINE 40 MG/M[2] [Suspect]
     Indication: ACUTE MYELOID LEUKAEMIA
     Dosage: 20 MG/M[2] /DAILY/IV
     Route: 042
     Dates: start: 20080804, end: 20080808
  5. LEVAQUIN [Suspect]
     Indication: INFECTION PROPHYLAXIS
     Dosage: 750 MG/DAILY/PO
     Route: 048
     Dates: start: 20080715, end: 20080731
  6. ALDACTONE [Concomitant]
  7. BUMEX [Concomitant]
  8. COLACE [Concomitant]
  9. DEMEROL [Concomitant]
  10. NORVASC [Concomitant]
  11. PERCOCET [Concomitant]
  12. SENOKOT [Concomitant]
  13. VICODIN [Concomitant]
  14. ZOFRAN [Concomitant]
  15. ACETAMINOPHEN [Concomitant]
  16. ACYCLOVIR [Concomitant]
  17. ALLOPURINOL [Concomitant]
  18. CALCIUM (UNSPECIFIED) [Concomitant]
  19. FAMOTIDINE [Concomitant]
  20. FLUCONAZOLE [Concomitant]
  21. FLUCONAZOLE [Concomitant]
  22. FUROSEMIDE [Concomitant]
  23. HYDRALAZINE HCL [Concomitant]
  24. LORAZEPAM [Concomitant]
  25. METOLAZONE [Concomitant]
  26. POTASSIUM CHLORIDE [Concomitant]
  27. SODIUM ACETATE [Concomitant]

REACTIONS (20)
  - BACK PAIN [None]
  - BONE PAIN [None]
  - CLOSTRIDIAL INFECTION [None]
  - CONFUSIONAL STATE [None]
  - DEHYDRATION [None]
  - DIARRHOEA [None]
  - DISORIENTATION [None]
  - DIZZINESS [None]
  - DRUG INTOLERANCE [None]
  - DRUG TOXICITY [None]
  - FEBRILE NEUTROPENIA [None]
  - FLUID OVERLOAD [None]
  - FUNGAL INFECTION [None]
  - HAEMORRHAGE INTRACRANIAL [None]
  - HYPONATRAEMIA [None]
  - MOOD ALTERED [None]
  - MUSCLE SPASMS [None]
  - NAUSEA [None]
  - VISION BLURRED [None]
  - WEIGHT INCREASED [None]
